FAERS Safety Report 13443769 (Version 1)
Quarter: 2017Q2

REPORT INFORMATION
  Report Type: Spontaneous
  Country: US (occurrence: US)
  Receive Date: 20170414
  Receipt Date: 20170414
  Transmission Date: 20170830
  Serious: No
  Sender: FDA-Public Use
  Company Number: None

PATIENT
  Age: 65 Year
  Sex: Female

DRUGS (17)
  1. RITUXAN [Concomitant]
     Active Substance: RITUXIMAB
  2. ARMODAFINIL. [Concomitant]
     Active Substance: ARMODAFINIL
  3. BUPROPRION [Concomitant]
     Active Substance: BUPROPION
  4. SIMVASTATIN. [Concomitant]
     Active Substance: SIMVASTATIN
  5. ADDERALL XR [Concomitant]
     Active Substance: AMPHETAMINE ASPARTATE\AMPHETAMINE SULFATE\DEXTROAMPHETAMINE SACCHARATE\DEXTROAMPHETAMINE SULFATE
  6. DONEPEZIL. [Concomitant]
     Active Substance: DONEPEZIL
  7. ESCITALOPRAM [Concomitant]
     Active Substance: ESCITALOPRAM OXALATE
  8. BACLOFEN. [Concomitant]
     Active Substance: BACLOFEN
  9. ALENDRONATE [Concomitant]
     Active Substance: ALENDRONATE SODIUM
  10. ZYRTEC [Concomitant]
     Active Substance: CETIRIZINE HYDROCHLORIDE
  11. AMPYRA [Suspect]
     Active Substance: DALFAMPRIDINE
     Indication: MULTIPLE SCLEROSIS
     Route: 048
     Dates: start: 201507
  12. VITAMIN D2 [Concomitant]
     Active Substance: ERGOCALCIFEROL
  13. LEVOTHYROXINE. [Concomitant]
     Active Substance: LEVOTHYROXINE
  14. PROAIR HFA [Concomitant]
     Active Substance: ALBUTEROL SULFATE
  15. VITAMIN B12 [Concomitant]
     Active Substance: CYANOCOBALAMIN
  16. DARIFENACIN. [Concomitant]
     Active Substance: DARIFENACIN
  17. MELOXICAM. [Concomitant]
     Active Substance: MELOXICAM

REACTIONS (8)
  - PCO2 decreased [None]
  - Streptococcus test positive [None]
  - Escherichia test positive [None]
  - Red blood cells urine positive [None]
  - Enterobacter test positive [None]
  - Urine leukocyte esterase positive [None]
  - White blood cells urine positive [None]
  - Glucose urine present [None]

NARRATIVE: CASE EVENT DATE: 20170322
